FAERS Safety Report 5741057-5 (Version None)
Quarter: 2008Q2

REPORT INFORMATION
  Report Type: 
  Country: None (occurrence: None)
  Receive Date: 20080516
  Receipt Date: 20080506
  Transmission Date: 20081010
  Serious: Yes (Hospitalization)
  Sender: FDA-Public Use
  Company Number: FR-PFIZER INC-2008039573

PATIENT
  Sex: Male

DRUGS (2)
  1. VFEND [Suspect]
     Indication: ASPERGILLOSIS
     Route: 048
  2. DRUG, UNSPECIFIED [Suspect]

REACTIONS (4)
  - COMA [None]
  - CYTOLYTIC HEPATITIS [None]
  - NEUROTOXICITY [None]
  - SUICIDE ATTEMPT [None]
